FAERS Safety Report 6075540-2 (Version None)
Quarter: 2009Q1

REPORT INFORMATION
  Report Type: 
  Country: None (occurrence: None)
  Receive Date: 20090212
  Receipt Date: 20090204
  Transmission Date: 20090719
  Serious: Yes (Congenital Anomaly)
  Sender: FDA-Public Use
  Company Number: TR-ASTRAZENECA-2009AC00520

PATIENT

DRUGS (1)
  1. TAMOXIFEN CITRATE [Suspect]
     Route: 064

REACTIONS (1)
  - CONGENITAL GENITAL MALFORMATION [None]
